FAERS Safety Report 5337451-7 (Version None)
Quarter: 2007Q2

REPORT INFORMATION
  Report Type: 
  Country: None (occurrence: None)
  Receive Date: 20070529
  Receipt Date: 20070524
  Transmission Date: 20071010
  Serious: Yes (Hospitalization)
  Sender: FDA-Public Use
  Company Number: US-BOEHRINGER INGELHEIM PHARMACEUTICALS, INC.-2007-BP-05379BP

PATIENT
  Sex: Female
  Weight: 72 kg

DRUGS (5)
  1. CATAPRES [Suspect]
     Indication: HYPERTENSION
     Route: 048
     Dates: start: 20070227, end: 20070227
  2. TOPROL-XL [Concomitant]
     Indication: HYPERTENSION
  3. SULAR [Concomitant]
     Indication: HYPERTENSION
  4. NEXIUM [Concomitant]
     Indication: GASTROINTESTINAL DISORDER
  5. CATAPRES-TTS-1 [Concomitant]
     Indication: HYPERTENSION

REACTIONS (3)
  - BLOOD PRESSURE DECREASED [None]
  - DIZZINESS [None]
  - OVERDOSE [None]
